FAERS Safety Report 5903331-9 (Version None)
Quarter: 2008Q3

REPORT INFORMATION
  Report Type: 
  Country: None (occurrence: None)
  Receive Date: 20080926
  Receipt Date: 20080724
  Transmission Date: 20090109
  Serious: No
  Sender: FDA-Public Use
  Company Number: ADE#  08-117

PATIENT
  Age: 40 Year
  Sex: Female
  Weight: 135 kg

DRUGS (1)
  1. TRAMADOL HYDROCHLORIDE AND ACETAMINOPHEN [Suspect]

REACTIONS (2)
  - DYSPNOEA [None]
  - VOMITING [None]
